FAERS Safety Report 7551556-1 (Version None)
Quarter: 2011Q2

REPORT INFORMATION
  Report Type: 
  Country: None (occurrence: None)
  Receive Date: 20110616
  Receipt Date: 20110608
  Transmission Date: 20111010
  Serious: Yes (Life-Threatening, Hospitalization)
  Sender: FDA-Public Use
  Company Number: IT-ROXANE LABORATORIES, INC.-2011-RO-00796RO

PATIENT
  Age: 33 Day
  Sex: Female
  Weight: 6 kg

DRUGS (3)
  1. ADENOSINE [Suspect]
     Indication: SUPRAVENTRICULAR TACHYCARDIA
     Route: 042
  2. VERPAMIL HCL [Suspect]
     Indication: SUPRAVENTRICULAR TACHYCARDIA
     Route: 042
  3. PROPRANOLOL [Suspect]
     Indication: SUPRAVENTRICULAR TACHYCARDIA
     Dosage: 2.5 MG
     Route: 048

REACTIONS (8)
  - HYPERKALAEMIA [None]
  - LOW CARDIAC OUTPUT SYNDROME [None]
  - ANURIA [None]
  - PNEUMONIA [None]
  - ARRHYTHMIA [None]
  - TOXICITY TO VARIOUS AGENTS [None]
  - HYPOXIA [None]
  - METABOLIC ACIDOSIS [None]
